FAERS Safety Report 10342681 (Version 1)
Quarter: 2014Q3

REPORT INFORMATION
  Report Type: Spontaneous
  Country: BE (occurrence: BE)
  Receive Date: 20140725
  Receipt Date: 20140725
  Transmission Date: 20150326
  Serious: Yes (Hospitalization)
  Sender: FDA-Public Use
  Company Number: BE-BAYER-2014-107100

PATIENT
  Age: 71 Year
  Sex: Male
  Weight: 80 kg

DRUGS (13)
  1. EMCONCOR [Suspect]
     Active Substance: BISOPROLOL FUMARATE
     Dosage: 2.5 MG, QD
     Route: 048
  2. TEMOCILLIN [Suspect]
     Active Substance: TEMOCILLIN
     Dosage: UNK
     Route: 042
     Dates: start: 20140427, end: 20140429
  3. ASAFLOW [Suspect]
     Active Substance: ASPIRIN
     Dosage: 1 DF, QD
  4. TRAZODONE [Suspect]
     Active Substance: TRAZODONE HYDROCHLORIDE
     Dosage: 50 MG, QD
     Route: 048
  5. FRAXIPARINE [Suspect]
     Active Substance: NADROPARIN CALCIUM
     Dosage: 0.4 ML, QD
  6. CIPROXINE [Suspect]
     Active Substance: CIPROFLOXACIN
     Indication: UROSEPSIS
     Dosage: 500 MG, BID
     Route: 048
     Dates: start: 20140506, end: 20140526
  7. TAMSULOSIN [Suspect]
     Active Substance: TAMSULOSIN
     Dosage: 0.4 MG, QD
  8. LYRICA [Suspect]
     Active Substance: PREGABALIN
     Dosage: 150 MG, QD
     Route: 048
  9. DAFALGAN [Suspect]
     Active Substance: ACETAMINOPHEN
     Dosage: 1 G, TID
  10. ZESTRIL [Suspect]
     Active Substance: LISINOPRIL
     Dosage: 5 MG, QD
  11. MAXIPIME [Suspect]
     Active Substance: CEFEPIME HYDROCHLORIDE
     Dosage: UNK
     Dates: start: 20140429, end: 20140506
  12. DIAFUSOR [Suspect]
     Active Substance: NITROGLYCERIN
     Dosage: 10 MG, QD
     Route: 062
  13. ZANTAC [Suspect]
     Active Substance: RANITIDINE HYDROCHLORIDE
     Dosage: 300 MG, QD

REACTIONS (2)
  - Confusional state [None]
  - Communication disorder [None]

NARRATIVE: CASE EVENT DATE: 20140506
